FAERS Safety Report 18623980 (Version 1)
Quarter: 2020Q4

REPORT INFORMATION
  Report Type: Spontaneous
  Country: IT (occurrence: IT)
  Receive Date: 20201216
  Receipt Date: 20201216
  Transmission Date: 20210114
  Serious: Yes (Hospitalization)
  Sender: FDA-Public Use
  Company Number: IT-PFIZER INC-2020495377

PATIENT
  Age: 13 Year
  Sex: Male

DRUGS (1)
  1. XANAX [Suspect]
     Active Substance: ALPRAZOLAM
     Dosage: 1 DF (TOTAL)
     Dates: start: 20201208, end: 20201208

REACTIONS (6)
  - Coordination abnormal [Recovering/Resolving]
  - Depressed level of consciousness [Recovering/Resolving]
  - Drug abuse [Recovering/Resolving]
  - Diplopia [Recovering/Resolving]
  - Ataxia [Recovering/Resolving]
  - Headache [Recovering/Resolving]

NARRATIVE: CASE EVENT DATE: 20201208
